FAERS Safety Report 4589710-3 (Version None)
Quarter: 2005Q1

REPORT INFORMATION
  Report Type: 
  Country: None (occurrence: None)
  Receive Date: 20050217
  Receipt Date: 20050131
  Transmission Date: 20050727
  Serious: Yes (Hospitalization)
  Sender: FDA-Public Use
  Company Number: 2005-BP-01360RO

PATIENT
  Age: 80 Year
  Sex: Male

DRUGS (5)
  1. LEUCOVORIN CALCIUM [Suspect]
     Indication: RECTAL CANCER
     Dosage: 75 MG/DAY, PO
     Route: 048
     Dates: start: 20040827, end: 20040916
  2. UFT [Suspect]
     Indication: RECTAL CANCER
     Dosage: 3 CAPSULES/DAY, PO
     Route: 048
     Dates: start: 20040827, end: 20040916
  3. IRINOTECAN [Suspect]
     Dosage: 120 MG, IV
     Route: 042
     Dates: start: 20040828
  4. MAGNESIUM OXIDE (MAGNESIUM OXIDE) [Concomitant]
  5. LAC-B (BIFIDOBACTERIUM BIFIDUM) [Concomitant]

REACTIONS (3)
  - DIARRHOEA [None]
  - EATING DISORDER [None]
  - MALAISE [None]
